FAERS Safety Report 6172293-4 (Version None)
Quarter: 2009Q2

REPORT INFORMATION
  Report Type: 
  Country: None (occurrence: None)
  Receive Date: 20090429
  Receipt Date: 20090414
  Transmission Date: 20091009
  Serious: Yes (Other)
  Sender: FDA-Public Use
  Company Number: JP-JNJFOC-20090402732

PATIENT

DRUGS (1)
  1. DUROTEP PATCH [Suspect]
     Indication: DRUG USE FOR UNKNOWN INDICATION
     Route: 062

REACTIONS (4)
  - APPLICATION SITE BLEEDING [None]
  - BEDRIDDEN [None]
  - DECUBITUS ULCER [None]
  - DRUG ADMINISTERED AT INAPPROPRIATE SITE [None]
